FAERS Safety Report 6257984-9 (Version None)
Quarter: 2009Q3

REPORT INFORMATION
  Report Type: 
  Country: None (occurrence: None)
  Receive Date: 20090707
  Receipt Date: 20090626
  Transmission Date: 20100115
  Serious: Yes (Death, Other)
  Sender: FDA-Public Use
  Company Number: GB-RANBAXY-2009RR-25340

PATIENT
  Age: 63 Year
  Sex: Female

DRUGS (5)
  1. TOPIRAMATE [Suspect]
  2. RANCEPINE [Suspect]
     Dosage: UNK
     Dates: start: 20090312
  3. RANCEPINE [Suspect]
     Dosage: UNK
     Dates: end: 20090311
  4. KEPPRA [Suspect]
  5. VIMPAT [Suspect]
     Dosage: UNK
     Dates: start: 20090312

REACTIONS (4)
  - CHRONIC OBSTRUCTIVE PULMONARY DISEASE [None]
  - DEATH [None]
  - DYSPNOEA [None]
  - HYPONATRAEMIA [None]
